FAERS Safety Report 15263858 (Version 1)
Quarter: 2018Q3

REPORT INFORMATION
  Report Type: Spontaneous
  Country: ES (occurrence: ES)
  Receive Date: 20180810
  Receipt Date: 20180810
  Transmission Date: 20181010
  Serious: Yes (Hospitalization, Other)
  Sender: FDA-Public Use
  Company Number: ES-TEVA-2018-ES-937357

PATIENT
  Age: 45 Year
  Sex: Male

DRUGS (8)
  1. ACFOL [Suspect]
     Active Substance: FOLIC ACID
     Indication: PRODUCT USED FOR UNKNOWN INDICATION
     Dosage: 5 UG/KG DAILY; 5 MG/DAY
     Route: 065
  2. PREDNISONE. [Suspect]
     Active Substance: PREDNISONE
     Indication: PRODUCT USED FOR UNKNOWN INDICATION
     Dosage: OCT/2014 WITH A NEW DOSE REDUCTION IN JUN/2015
     Route: 065
     Dates: start: 201410
  3. PREDNISONE. [Suspect]
     Active Substance: PREDNISONE
     Dosage: OCT/2014 WITH A NEW DOSE REDUCTION IN JUN/2015
     Route: 065
     Dates: start: 201506
  4. LEFLUNOMIDE. [Suspect]
     Active Substance: LEFLUNOMIDE
     Indication: PRODUCT USED FOR UNKNOWN INDICATION
     Route: 065
  5. CERTOLIZUMAB [Suspect]
     Active Substance: CERTOLIZUMAB
     Indication: PRODUCT USED FOR UNKNOWN INDICATION
     Route: 065
     Dates: start: 201303
  6. METHOTREXATE. [Suspect]
     Active Substance: METHOTREXATE
     Indication: PRODUCT USED FOR UNKNOWN INDICATION
     Route: 065
  7. ROACTEMRA [Suspect]
     Active Substance: TOCILIZUMAB
     Indication: RHEUMATOID ARTHRITIS
     Route: 065
     Dates: start: 200912
  8. CIMZIA [Suspect]
     Active Substance: CERTOLIZUMAB PEGOL
     Indication: PRODUCT USED FOR UNKNOWN INDICATION
     Route: 065

REACTIONS (12)
  - Pneumonia [Unknown]
  - Face oedema [Unknown]
  - Drug intolerance [Unknown]
  - Asthma [Unknown]
  - Rhinitis allergic [Unknown]
  - Deafness neurosensory [Unknown]
  - Bursitis [Unknown]
  - Ill-defined disorder [Unknown]
  - Sleep apnoea syndrome [Unknown]
  - Asthma [Unknown]
  - Pleural effusion [Unknown]
  - Eosinophilia [Unknown]

NARRATIVE: CASE EVENT DATE: 201012
